FAERS Safety Report 7585197-7 (Version None)
Quarter: 2011Q3

REPORT INFORMATION
  Report Type: 
  Country: None (occurrence: None)
  Receive Date: 20110701
  Receipt Date: 20110622
  Transmission Date: 20111222
  Serious: No
  Sender: FDA-Public Use
  Company Number: US-BIOGENIDEC-2010BI035150

PATIENT
  Sex: Female

DRUGS (1)
  1. TYSABRI [Suspect]
     Indication: MULTIPLE SCLEROSIS
     Route: 042
     Dates: start: 20090318

REACTIONS (5)
  - VITAMIN D DEFICIENCY [None]
  - FATIGUE [None]
  - GAIT DISTURBANCE [None]
  - BALANCE DISORDER [None]
  - VITAMIN D DECREASED [None]
